FAERS Safety Report 10607305 (Version 1)
Quarter: 2014Q4

REPORT INFORMATION
  Report Type: Spontaneous
  Country: US (occurrence: US)
  Receive Date: 20141125
  Receipt Date: 20141125
  Transmission Date: 20150529
  Serious: Yes (Hospitalization, Other)
  Sender: FDA-Public Use
  Company Number: US-ABBVIE-14P-163-1311322-00

PATIENT
  Age: 64 Year
  Sex: Male

DRUGS (1)
  1. ANDROGEL [Suspect]
     Active Substance: TESTOSTERONE
     Indication: BLOOD TESTOSTERONE DECREASED
     Route: 062
     Dates: start: 2007, end: 20130928

REACTIONS (11)
  - Impaired work ability [Unknown]
  - Anhedonia [Unknown]
  - Fear [Unknown]
  - Lung disorder [Unknown]
  - Pain [Unknown]
  - Social problem [Unknown]
  - Acute myocardial infarction [Unknown]
  - Angiopathy [Unknown]
  - Economic problem [Unknown]
  - Anxiety [Unknown]
  - Cardiac disorder [Unknown]
